FAERS Safety Report 17325207 (Version 1)
Quarter: 2020Q1

REPORT INFORMATION
  Report Type: Report from Study
  Country: BR (occurrence: BR)
  Receive Date: 20200127
  Receipt Date: 20200127
  Transmission Date: 20200409
  Serious: Yes (Death, Other)
  Sender: FDA-Public Use
  Company Number: BR-GILEAD-2020-0448122

PATIENT
  Sex: Male

DRUGS (2)
  1. SOFOSBUVIR [Suspect]
     Active Substance: SOFOSBUVIR
     Indication: HEPATITIS C
     Dosage: UNK
     Route: 048
  2. DACLATASVIR. [Concomitant]
     Active Substance: DACLATASVIR

REACTIONS (3)
  - Liver disorder [Fatal]
  - Renal disorder [Fatal]
  - Haemorrhagic stroke [Fatal]

NARRATIVE: CASE EVENT DATE: 2019
